FAERS Safety Report 15541105 (Version 6)
Quarter: 2019Q1

REPORT INFORMATION
  Report Type: Spontaneous
  Country: JP (occurrence: JP)
  Receive Date: 20181023
  Receipt Date: 20190313
  Transmission Date: 20190417
  Serious: Yes (Death, Life-Threatening, Hospitalization)
  Sender: FDA-Public Use
  Company Number: PHJP2018JP018230

PATIENT
  Age: 76 Year
  Sex: Male
  Weight: 36.4 kg

DRUGS (7)
  1. ZYRTEC [Concomitant]
     Active Substance: CETIRIZINE HYDROCHLORIDE
     Indication: PRODUCT USED FOR UNKNOWN INDICATION
     Dosage: UNK
     Route: 065
  2. COSENTYX [Suspect]
     Active Substance: SECUKINUMAB
     Dosage: 150 MG, QW
     Route: 058
     Dates: start: 20160812
  3. LYRICA [Concomitant]
     Active Substance: PREGABALIN
     Indication: HYPOAESTHESIA
     Dosage: 25 MG, QD
     Route: 048
     Dates: start: 20170928, end: 20180905
  4. COSENTYX [Suspect]
     Active Substance: SECUKINUMAB
     Dosage: 150 MG, QMO
     Route: 058
     Dates: start: 20160901, end: 20180830
  5. URSO [Concomitant]
     Active Substance: URSODIOL
     Indication: HEPATIC ENZYME INCREASED
     Dosage: 200 MG, TID
     Route: 048
     Dates: start: 20160204, end: 20180905
  6. COSENTYX [Suspect]
     Active Substance: SECUKINUMAB
     Indication: PUSTULAR PSORIASIS
     Dosage: 150 MG, QW
     Route: 058
     Dates: start: 20160714
  7. KIPRES [Concomitant]
     Active Substance: MONTELUKAST SODIUM
     Indication: ASTHMA
     Dosage: 10 MG, QD
     Route: 065
     Dates: start: 20090709, end: 20180905

REACTIONS (8)
  - Cardiac failure acute [Fatal]
  - Abdominal pain upper [Unknown]
  - Acidosis [Fatal]
  - Pancreatitis acute [Not Recovered/Not Resolved]
  - Haemothorax [Not Recovered/Not Resolved]
  - Labile blood pressure [Fatal]
  - Wheezing [Fatal]
  - Hypoxia [Fatal]

NARRATIVE: CASE EVENT DATE: 20180905
